FAERS Safety Report 7470859-2 (Version None)
Quarter: 2011Q2

REPORT INFORMATION
  Report Type: 
  Country: None (occurrence: None)
  Receive Date: 20110502
  Receipt Date: 20110426
  Transmission Date: 20111010
  Serious: Yes (Life-Threatening, Hospitalization, Other)
  Sender: FDA-Public Use
  Company Number: 2010SP065951

PATIENT
  Age: 66 Year
  Sex: Female

DRUGS (5)
  1. DECADRON [Concomitant]
  2. TEMODAL [Suspect]
     Indication: GLIOBLASTOMA MULTIFORME
     Dosage: 100 MG, QD, PO
     Route: 048
  3. RADIOTHERAPY (THERAPEUTIC RADIOPHARMACEUTICALS) [Suspect]
     Indication: GLIOBLASTOMA MULTIFORME
  4. SULFAMETHOXAZOLE [Concomitant]
  5. TRIMETHOPRIM [Concomitant]

REACTIONS (3)
  - ALTERED STATE OF CONSCIOUSNESS [None]
  - PNEUMONIA CYTOMEGALOVIRAL [None]
  - CYTOMEGALOVIRUS HEPATITIS [None]
